FAERS Safety Report 21638691 (Version 27)
Quarter: 2025Q3

REPORT INFORMATION
  Report Type: Report from Study
  Country: US (occurrence: US)
  Receive Date: 20221124
  Receipt Date: 20250728
  Transmission Date: 20251021
  Serious: Yes (Hospitalization, Other)
  Sender: TAKEDA
  Company Number: US-TAKEDA-2022TUS088358

PATIENT
  Sex: Female
  Weight: 84 kg

DRUGS (76)
  1. HUMAN IMMUNOGLOBULIN G [Suspect]
     Active Substance: HUMAN IMMUNOGLOBULIN G
     Indication: Immunodeficiency common variable
     Dosage: 25 GRAM, Q2WEEKS
     Dates: start: 20221024
  2. HUMAN IMMUNOGLOBULIN G [Suspect]
     Active Substance: HUMAN IMMUNOGLOBULIN G
     Dosage: 20 GRAM, 1/WEEK
  3. HUMAN IMMUNOGLOBULIN G [Suspect]
     Active Substance: HUMAN IMMUNOGLOBULIN G
     Dosage: 20 GRAM, Q2WEEKS
  4. XEMBIFY [Suspect]
     Active Substance: HUMAN IMMUNOGLOBULIN G
     Indication: Product used for unknown indication
  5. CEFUROXIME AXETIL [Suspect]
     Active Substance: CEFUROXIME AXETIL
     Indication: Headache
  6. QUERCETIN [Concomitant]
     Active Substance: QUERCETIN
  7. POTASSIUM [Concomitant]
     Active Substance: POTASSIUM
  8. LEVOTHYROXINE [Concomitant]
     Active Substance: LEVOTHYROXINE
  9. EPINEPHRINE [Concomitant]
     Active Substance: EPINEPHRINE
  10. BREO ELLIPTA [Concomitant]
     Active Substance: FLUTICASONE FUROATE\VILANTEROL TRIFENATATE
  11. SUDAFED [Concomitant]
     Active Substance: PSEUDOEPHEDRINE HYDROCHLORIDE
  12. TYLENOL ARTHRITIS PAIN [Concomitant]
     Active Substance: ACETAMINOPHEN
  13. FISH OIL [Concomitant]
     Active Substance: FISH OIL
  14. VITAMIN D3 [Concomitant]
     Active Substance: CHOLECALCIFEROL
  15. DEXAMETHASONE [Concomitant]
     Active Substance: DEXAMETHASONE
  16. ADDERALL [Concomitant]
     Active Substance: AMPHETAMINE ASPARTATE\AMPHETAMINE SULFATE\DEXTROAMPHETAMINE SACCHARATE\DEXTROAMPHETAMINE SULFATE
  17. FLONASE ALLERGY RELIEF [Concomitant]
     Active Substance: FLUTICASONE PROPIONATE
  18. ONDANSETRON HYDROCHLORIDE [Concomitant]
     Active Substance: ONDANSETRON HYDROCHLORIDE
  19. OZEMPIC [Concomitant]
     Active Substance: SEMAGLUTIDE
  20. CLARITIN-D NOS [Concomitant]
     Active Substance: LORATADINE\PSEUDOEPHEDRINE SULFATE
  21. SENNA S [Concomitant]
     Active Substance: DOCUSATE SODIUM\SENNOSIDES
  22. DIETARY SUPPLEMENT\HERBALS\MILK THISTLE [Concomitant]
     Active Substance: MILK THISTLE
  23. TUMS [Concomitant]
     Active Substance: CALCIUM CARBONATE
  24. MESTINON [Concomitant]
     Active Substance: PYRIDOSTIGMINE BROMIDE
  25. LEVOMEFOLATE CALCIUM [Concomitant]
     Active Substance: LEVOMEFOLATE CALCIUM
  26. CALCIUM [Concomitant]
     Active Substance: CALCIUM
  27. LOSARTAN POTASSIUM [Concomitant]
     Active Substance: LOSARTAN POTASSIUM
  28. Lmx [Concomitant]
  29. HERBALS\TURMERIC [Concomitant]
     Active Substance: HERBALS\TURMERIC
  30. MELATONIN [Concomitant]
     Active Substance: MELATONIN
  31. CYMBALTA [Concomitant]
     Active Substance: DULOXETINE HYDROCHLORIDE
  32. PANTOPRAZOLE SODIUM [Concomitant]
     Active Substance: PANTOPRAZOLE SODIUM
  33. FAMOTIDINE [Concomitant]
     Active Substance: FAMOTIDINE
  34. VALIUM [Concomitant]
     Active Substance: DIAZEPAM
  35. HYDROCODONE [Concomitant]
     Active Substance: HYDROCODONE
  36. ACETAMINOPHEN [Concomitant]
     Active Substance: ACETAMINOPHEN
  37. ZINC [Concomitant]
     Active Substance: ZINC
  38. Lozenger t [Concomitant]
  39. Methylfolate plus [Concomitant]
  40. HERBALS [Concomitant]
     Active Substance: HERBALS
  41. VITAMIN D [Concomitant]
     Active Substance: VITAMIN D NOS
  42. VITAMIN D2 [Concomitant]
     Active Substance: ERGOCALCIFEROL
  43. METHYLCOBALAMIN [Concomitant]
     Active Substance: METHYLCOBALAMIN
  44. PEPTO-BISMOL [Concomitant]
     Active Substance: BISMUTH SUBSALICYLATE
  45. ACETAMINOPHEN\HYDROCODONE [Concomitant]
     Active Substance: ACETAMINOPHEN\HYDROCODONE
  46. SINGULAIR [Concomitant]
     Active Substance: MONTELUKAST SODIUM
  47. PSYLLIUM HUSK [Concomitant]
     Active Substance: PSYLLIUM HUSK
  48. HYDROCORTISONE [Concomitant]
     Active Substance: HYDROCORTISONE
  49. GRANISETRON HYDROCHLORIDE [Concomitant]
     Active Substance: GRANISETRON HYDROCHLORIDE
  50. AZELASTINE HYDROCHLORIDE [Concomitant]
     Active Substance: AZELASTINE HYDROCHLORIDE
  51. XIGDUO XR [Concomitant]
     Active Substance: DAPAGLIFLOZIN PROPANEDIOL\METFORMIN HYDROCHLORIDE
  52. IBUPROFEN [Concomitant]
     Active Substance: IBUPROFEN
  53. DIPHENHYDRAMINE HYDROCHLORIDE [Concomitant]
     Active Substance: DIPHENHYDRAMINE HYDROCHLORIDE
  54. ZALEPLON [Concomitant]
     Active Substance: ZALEPLON
  55. LORATADINE [Concomitant]
     Active Substance: LORATADINE
  56. PYRIDOSTIGMINE BROMIDE [Concomitant]
     Active Substance: PYRIDOSTIGMINE BROMIDE
  57. ALBUTEROL SULFATE [Concomitant]
     Active Substance: ALBUTEROL SULFATE
  58. CYANOCOBALAMIN [Concomitant]
     Active Substance: CYANOCOBALAMIN
  59. DIAZEPAM [Concomitant]
     Active Substance: DIAZEPAM
  60. LEVOTHYROXINE SODIUM [Concomitant]
     Active Substance: LEVOTHYROXINE SODIUM
  61. VITAMIN D3 [Concomitant]
     Active Substance: CHOLECALCIFEROL
  62. BUTALBITAL, ACETAMINOPHEN, AND CAFFEINE [Concomitant]
     Active Substance: ACETAMINOPHEN\BUTALBITAL\CAFFEINE
  63. AMOXICILLIN AND CLAVULANATE POTASSIUM [Concomitant]
     Active Substance: AMOXICILLIN\CLAVULANATE POTASSIUM
  64. STOOL SOFTENER (DOCUSATE) [Concomitant]
     Active Substance: DOCUSATE
  65. MOUNJARO [Concomitant]
     Active Substance: TIRZEPATIDE
  66. REMERON [Concomitant]
     Active Substance: MIRTAZAPINE
  67. XYZAL [Concomitant]
     Active Substance: LEVOCETIRIZINE DIHYDROCHLORIDE
  68. LIDOCAINE [Concomitant]
     Active Substance: LIDOCAINE
  69. ELIQUIS [Concomitant]
     Active Substance: APIXABAN
  70. COENZYME Q10 [Concomitant]
     Active Substance: DIETARY SUPPLEMENT\UBIDECARENONE
  71. ALBUTEROL [Concomitant]
     Active Substance: ALBUTEROL
  72. BUTALBITAL [Concomitant]
     Active Substance: BUTALBITAL
  73. PANTOPRAZOLE [Concomitant]
     Active Substance: PANTOPRAZOLE
  74. AZELASTINE [Concomitant]
     Active Substance: AZELASTINE
  75. LOSARTAN [Concomitant]
     Active Substance: LOSARTAN
  76. DEXAMETHASONE [Concomitant]
     Active Substance: DEXAMETHASONE

REACTIONS (30)
  - Mastoiditis [Recovered/Resolved]
  - Pneumonia aspiration [Recovered/Resolved]
  - Pneumonia [Recovered/Resolved]
  - Gastroenteritis norovirus [Recovered/Resolved]
  - Pertussis [Unknown]
  - Lower respiratory tract infection [Recovered/Resolved]
  - Urinary tract infection [Recovered/Resolved]
  - Dermatitis contact [Not Recovered/Not Resolved]
  - Respiratory syncytial virus infection [Recovered/Resolved]
  - Meningitis [Unknown]
  - Adrenocortical insufficiency acute [Unknown]
  - Metabolic acidosis [Unknown]
  - Asthenia [Unknown]
  - Meningitis aseptic [Not Recovered/Not Resolved]
  - Infection [Unknown]
  - Oral mucosal eruption [Unknown]
  - Nasopharyngitis [Recovered/Resolved]
  - Illness [Recovered/Resolved]
  - Ear infection [Recovered/Resolved]
  - COVID-19 [Recovered/Resolved]
  - Infusion site discharge [Unknown]
  - Product dose omission issue [Unknown]
  - Product use issue [Unknown]
  - Sinusitis [Recovered/Resolved]
  - Infusion site bruising [Recovering/Resolving]
  - Influenza like illness [Recovered/Resolved]
  - Cough [Recovered/Resolved]
  - Infusion site swelling [Recovering/Resolving]
  - Headache [Recovered/Resolved]
  - Fatigue [Recovering/Resolving]
